FAERS Safety Report 11238349 (Version 2)
Quarter: 2015Q4

REPORT INFORMATION
  Report Type: Spontaneous
  Country: CN (occurrence: CN)
  Receive Date: 20150704
  Receipt Date: 20151111
  Transmission Date: 20160304
  Serious: Yes (Other)
  Sender: FDA-Public Use
  Company Number: CN-CIPLA LTD.-2015CN05233

PATIENT

DRUGS (4)
  1. NIMOTUZUMAB [Suspect]
     Active Substance: NIMOTUZUMAB
     Indication: COLORECTAL CANCER
     Dosage: 400 MG, WEEKLY FOR 6 WEEKS
     Dates: start: 200907, end: 201101
  2. IRINOTECAN [Suspect]
     Active Substance: IRINOTECAN
     Indication: COLORECTAL CANCER
     Dosage: 180 MG/M2, EVERY TWO WEEKS FOR 3 CYCLES
     Dates: start: 200907, end: 201101
  3. 5- HT3 RECEPTOR ANTAGONISTS [Concomitant]
     Route: 065
  4. HYPODERMIC ATROPINE [Concomitant]
     Dosage: 0.25 MG, UNK
     Route: 065

REACTIONS (1)
  - Disease progression [Unknown]
